FAERS Safety Report 19965996 (Version 2)
Quarter: 2021Q4

REPORT INFORMATION
  Report Type: Report from Study
  Country: None (occurrence: RO)
  Receive Date: 20211019
  Receipt Date: 20211022
  Transmission Date: 20220303
  Serious: Yes (Death, Hospitalization, Other)
  Sender: FDA-Public Use
  Company Number: RO-ABBVIE-21K-135-4123751-00

PATIENT
  Age: 74 Year
  Sex: Female

DRUGS (2)
  1. CARBIDOPA\LEVODOPA [Suspect]
     Active Substance: CARBIDOPA\LEVODOPA
     Indication: Parkinson^s disease
     Dosage: DM=12.00 DC=7.50 ED=2.00 NRED=2; DMN=0.00 DCN=0.00 EDN=0.00 NREDN=0?20 MG/ML 5 MG/ML
     Route: 050
     Dates: start: 20210908, end: 20211015
  2. CARBIDOPA\LEVODOPA [Suspect]
     Active Substance: CARBIDOPA\LEVODOPA

REACTIONS (2)
  - Cardio-respiratory arrest [Fatal]
  - Illness [Unknown]

NARRATIVE: CASE EVENT DATE: 20210101
